FAERS Safety Report 4486626-8 (Version None)
Quarter: 2004Q4

REPORT INFORMATION
  Report Type: 
  Country: None (occurrence: None)
  Receive Date: 20041027
  Receipt Date: 20041022
  Transmission Date: 20050328
  Serious: Yes (Hospitalization)
  Sender: FDA-Public Use
  Company Number: PHBS2004KR14034

PATIENT
  Sex: Male

DRUGS (2)
  1. CO-DIOVAN [Suspect]
     Indication: HYPERTENSION
     Dosage: VALS 160 / HCT 12.5 MG
     Route: 048
  2. ZANIDIP [Concomitant]
     Dosage: 10 MG, UNK

REACTIONS (1)
  - CEREBRAL INFARCTION [None]
